FAERS Safety Report 6480029-2 (Version None)
Quarter: 2009Q4

REPORT INFORMATION
  Report Type: 
  Country: None (occurrence: None)
  Receive Date: 20091202
  Receipt Date: 20091119
  Transmission Date: 20100525
  Serious: Yes (Hospitalization)
  Sender: FDA-Public Use
  Company Number: ESP09000107

PATIENT
  Age: 83 Year
  Sex: Female

DRUGS (1)
  1. ACTONEL [Suspect]
     Indication: BACK PAIN
     Dosage: 35 MG, 1 /WEEK, ORAL
     Route: 048
     Dates: start: 20060725, end: 20080101

REACTIONS (1)
  - ATRIAL FIBRILLATION [None]
